FAERS Safety Report 5466297-4 (Version None)
Quarter: 2007Q3

REPORT INFORMATION
  Report Type: 
  Country: None (occurrence: None)
  Receive Date: 20070919
  Receipt Date: 20070907
  Transmission Date: 20080115
  Serious: Yes (Other)
  Sender: FDA-Public Use
  Company Number: 07H-150-0313182-00

PATIENT
  Age: 9 Year
  Sex: Male

DRUGS (29)
  1. VANCOMYCIN HYDROCHLORIDE [Suspect]
     Indication: DRUG USE FOR UNKNOWN INDICATION
  2. ONDANSETRON [Suspect]
     Indication: DRUG USE FOR UNKNOWN INDICATION
  3. CYCLOSPORINE [Suspect]
     Indication: PROPHYLAXIS AGAINST GRAFT VERSUS HOST DISEASE
  4. ACYCLOVIR [Suspect]
     Indication: DRUG USE FOR UNKNOWN INDICATION
  5. FLUCONAZOLE [Suspect]
     Indication: DRUG USE FOR UNKNOWN INDICATION
  6. RANITIDINE HCL [Suspect]
     Indication: DRUG USE FOR UNKNOWN INDICATION
  7. METHYLPREDNISOLONE [Suspect]
     Indication: DRUG USE FOR UNKNOWN INDICATION
  8. PREDNISOLONE [Suspect]
     Indication: DRUG USE FOR UNKNOWN INDICATION
  9. NIFEDIPINE [Suspect]
     Indication: DRUG USE FOR UNKNOWN INDICATION
  10. DEXCHLORPHENIRAMINE [Suspect]
     Indication: DRUG USE FOR UNKNOWN INDICATION
  11. CEFOTAXIME SODIUM [Suspect]
     Indication: DRUG USE FOR UNKNOWN INDICATION
  12. BACTRIM [Suspect]
     Indication: DRUG USE FOR UNKNOWN INDICATION
  13. AMPICILLIN [Suspect]
     Indication: DRUG USE FOR UNKNOWN INDICATION
  14. GENTAMICIN [Suspect]
     Indication: DRUG USE FOR UNKNOWN INDICATION
  15. CEFTAZIDIME [Suspect]
     Indication: DRUG USE FOR UNKNOWN INDICATION
  16. MEROPENEM [Suspect]
     Indication: DRUG USE FOR UNKNOWN INDICATION
  17. ALLOPURINOL [Suspect]
     Indication: DRUG USE FOR UNKNOWN INDICATION
  18. ACETAMINOPHEN [Suspect]
     Indication: DRUG USE FOR UNKNOWN INDICATION
  19. CODEINE SUL TAB [Suspect]
     Indication: DRUG USE FOR UNKNOWN INDICATION
  20. CYCLOPHOSPHAMIDE [Suspect]
  21. MESNA [Suspect]
     Indication: DRUG USE FOR UNKNOWN INDICATION
  22. LACTULOSE [Suspect]
     Indication: DRUG USE FOR UNKNOWN INDICATION
  23. TRIMEPRAZINE TAB [Suspect]
     Indication: DRUG USE FOR UNKNOWN INDICATION
  24. FUROSEMIDE [Suspect]
     Indication: DRUG USE FOR UNKNOWN INDICATION
  25. ZOPICLONE [Suspect]
     Indication: DRUG USE FOR UNKNOWN INDICATION
  26. MORPHINE [Suspect]
     Indication: DRUG USE FOR UNKNOWN INDICATION
  27. METHOTREXATE [Suspect]
     Indication: PROPHYLAXIS AGAINST GRAFT VERSUS HOST DISEASE
  28. PREDNISONE TAB [Concomitant]
  29. DIPYRIDAMOLE [Concomitant]

REACTIONS (5)
  - BLOOD CULTURE POSITIVE [None]
  - CHRONIC GRAFT VERSUS HOST DISEASE [None]
  - ENTEROCOCCAL INFECTION [None]
  - HAEMOLYTIC URAEMIC SYNDROME [None]
  - TOXIC EPIDERMAL NECROLYSIS [None]
